FAERS Safety Report 5914884-9 (Version None)
Quarter: 2008Q4

REPORT INFORMATION
  Report Type: 
  Country: None (occurrence: None)
  Receive Date: 20081010
  Receipt Date: 20081003
  Transmission Date: 20090506
  Serious: Yes (Hospitalization)
  Sender: FDA-Public Use
  Company Number: PHHY2008JP23693

PATIENT
  Age: 72 Year
  Sex: Male

DRUGS (5)
  1. NEORAL [Suspect]
     Indication: INTERSTITIAL LUNG DISEASE
     Dosage: 600 MG/DAY
     Route: 048
     Dates: start: 20080724
  2. BONALON [Concomitant]
     Dosage: 35 MG/DAY
     Route: 048
     Dates: start: 20080724
  3. FAMOTIDINE [Concomitant]
     Dosage: 40 MG/DAY
     Route: 048
     Dates: start: 20080724
  4. COTRIM [Concomitant]
     Dosage: 2 DF EVERY OTHER DAY
     Route: 048
     Dates: start: 20080724
  5. PREDONINE [Concomitant]

REACTIONS (4)
  - BLOOD SODIUM DECREASED [None]
  - INAPPROPRIATE ANTIDIURETIC HORMONE SECRETION [None]
  - LETHARGY [None]
  - MALAISE [None]
